FAERS Safety Report 8814874 (Version 2)
Quarter: 2012Q4

REPORT INFORMATION
  Report Type: 
  Country: TW (occurrence: TW)
  Receive Date: 20120928
  Receipt Date: 20121002
  Transmission Date: 20130627
  Serious: Yes (Other)
  Sender: FDA-Public Use
  Company Number: TW-009507513-1209TWN009882

PATIENT
  Age: 55 Year
  Sex: Female

DRUGS (5)
  1. REBETOL [Suspect]
     Indication: HEPATITIS C
     Dosage: 800 mg, qd
     Route: 048
  2. PEG-INTRON [Suspect]
     Indication: HEPATITIS C
     Dosage: 80 Microgram, qw
     Route: 030
  3. DARBEPOETIN ALFA [Interacting]
     Indication: ANAEMIA
  4. METFORMIN [Concomitant]
     Indication: DIABETES MELLITUS MANAGEMENT
     Dosage: 1000 mg, qd
  5. SITAGLIPTIN PHOSPHATE [Concomitant]
     Indication: DIABETES MELLITUS MANAGEMENT

REACTIONS (2)
  - Haemolytic anaemia [Unknown]
  - Drug interaction [Unknown]
